FAERS Safety Report 19565165 (Version 2)
Quarter: 2022Q3

REPORT INFORMATION
  Report Type: Other
  Country: GB (occurrence: GB)
  Receive Date: 20210716
  Receipt Date: 20220802
  Transmission Date: 20221026
  Serious: Yes (Life-Threatening, Hospitalization, Other)
  Sender: FDA-Public Use
  Company Number: None

PATIENT

DRUGS (8)
  1. HYDROXYCHLOROQUINE SULFATE [Suspect]
     Active Substance: HYDROXYCHLOROQUINE SULFATE
     Indication: Product used for unknown indication
     Dosage: 200 MILLIGRAM
     Route: 065
     Dates: start: 20210319, end: 20210406
  2. ASTRAZENECA COVID-19 VACCINE [Suspect]
     Active Substance: AZD-1222
     Indication: COVID-19 immunisation
     Dosage: 0.5 MILLILITER, DOSE 1
     Route: 030
     Dates: start: 20210129, end: 20210129
  3. ACYCLOVIR [Concomitant]
     Active Substance: ACYCLOVIR
     Indication: Rash
     Dosage: 800 MILLIGRAM
     Route: 065
     Dates: start: 20210407, end: 20210506
  4. ALENDRONIC ACID [Concomitant]
     Active Substance: ALENDRONIC ACID
     Indication: Rheumatoid arthritis
     Dosage: 70 MILLIGRAM, WITH A FULL GLASS OF WATER.
     Route: 065
     Dates: start: 20210316
  5. DERMOL [Concomitant]
     Active Substance: BENZALKONIUM CHLORIDE\CHLORHEXIDINE HYDROCHLORIDE\ISOPROPYL MYRISTATE\PARAFFIN
     Indication: Product used for unknown indication
     Dosage: 500 MILLILITER
     Route: 065
     Dates: start: 20210406
  6. FEXOFENADINE [Concomitant]
     Active Substance: FEXOFENADINE HYDROCHLORIDE
     Indication: Product used for unknown indication
     Dosage: 180 MILLIGRAM
     Route: 065
     Dates: start: 20210406
  7. FLUCLOXACILLIN [Concomitant]
     Active Substance: FLUCLOXACILLIN
     Indication: Rash
     Dosage: 500 MILLIGRAM
     Route: 065
     Dates: start: 20210407, end: 20210506
  8. NYSTATIN [Concomitant]
     Active Substance: NYSTATIN
     Indication: Product used for unknown indication
     Dosage: 1MILLILITRE TO BE DROPPED INTO THE MOUTH FOUR TIMES A DAY
     Route: 048
     Dates: start: 20210406, end: 20210505

REACTIONS (5)
  - Toxic epidermal necrolysis [Unknown]
  - Toxic epidermal necrolysis [Not Recovered/Not Resolved]
  - Sepsis [Unknown]
  - Rash vesicular [Unknown]
  - Skin exfoliation [Unknown]

NARRATIVE: CASE EVENT DATE: 20210406
